FAERS Safety Report 22338550 (Version 1)
Quarter: 2023Q2

REPORT INFORMATION
  Report Type: Spontaneous
  Country: US (occurrence: None)
  Receive Date: 20230518
  Receipt Date: 20230518
  Transmission Date: 20230722
  Serious: No
  Sender: FDA-Public Use
  Company Number: US-ROCHE-3260470

PATIENT
  Sex: Female

DRUGS (16)
  1. ACTEMRA [Suspect]
     Active Substance: TOCILIZUMAB
     Indication: Idiopathic pulmonary fibrosis
     Dosage: 162 MG/0.9 ML
     Route: 058
  2. ACTEMRA [Suspect]
     Active Substance: TOCILIZUMAB
  3. ACTEMRA [Suspect]
     Active Substance: TOCILIZUMAB
  4. BACTRIM [Concomitant]
     Active Substance: SULFAMETHOXAZOLE\TRIMETHOPRIM
     Dosage: DOSE: 800/ 160 MG
  5. CEPHALEXIN [Concomitant]
     Active Substance: CEPHALEXIN
  6. PREVACID 24 HR [Concomitant]
     Active Substance: LANSOPRAZOLE
  7. AZULFIDINE [Concomitant]
     Active Substance: SULFASALAZINE
  8. CELEBREX [Concomitant]
     Active Substance: CELECOXIB
  9. CLOBETASOL [Concomitant]
     Active Substance: CLOBETASOL
  10. COENZYME Q10 [Concomitant]
     Active Substance: DIETARY SUPPLEMENT\UBIDECARENONE
  11. LEVOTHYROXINE [Concomitant]
     Active Substance: LEVOTHYROXINE
     Dosage: DOSE: 50 MCG
  12. LEXAPRO [Concomitant]
     Active Substance: ESCITALOPRAM OXALATE
  13. OMEGA 3 [Concomitant]
     Active Substance: CAPSAICIN
  14. THERATEARS [Concomitant]
     Active Substance: CARBOXYMETHYLCELLULOSE SODIUM
  15. HERBALS\TURMERIC [Concomitant]
     Active Substance: HERBALS\TURMERIC
  16. VITAMIN D3 [Concomitant]
     Active Substance: CHOLECALCIFEROL

REACTIONS (1)
  - Dry eye [Not Recovered/Not Resolved]
